FAERS Safety Report 8033156-2 (Version None)
Quarter: 2012Q1

REPORT INFORMATION
  Report Type: 
  Country: None (occurrence: None)
  Receive Date: 20120110
  Receipt Date: 20120110
  Transmission Date: 20120608
  Serious: Yes (Other)
  Sender: FDA-Public Use
  Company Number: None

PATIENT
  Age: 72 Year
  Sex: Female
  Weight: 76.203 kg

DRUGS (2)
  1. EVOXAC [Suspect]
     Indication: SJOGREN'S SYNDROME
     Dosage: 30
     Route: 048
     Dates: start: 20111222, end: 20120106
  2. EVOXAC [Suspect]
     Indication: DRY MOUTH
     Dosage: 30
     Route: 048
     Dates: start: 20111222, end: 20120106

REACTIONS (8)
  - MUSCULOSKELETAL PAIN [None]
  - NECK PAIN [None]
  - PAIN IN EXTREMITY [None]
  - NO THERAPEUTIC RESPONSE [None]
  - MUSCLE SPASMS [None]
  - NEURALGIA [None]
  - MYALGIA [None]
  - TOOTH DISORDER [None]
